FAERS Safety Report 10707236 (Version 1)
Quarter: 2015Q1

REPORT INFORMATION
  Report Type: Spontaneous
  Country: US (occurrence: None)
  Receive Date: 20150112
  Receipt Date: 20150112
  Transmission Date: 20150721
  Serious: Yes (Hospitalization)
  Sender: FDA-Public Use
  Company Number: None

PATIENT
  Age: 68 Year
  Sex: Male
  Weight: 106.4 kg

DRUGS (2)
  1. LISINOPRIL. [Suspect]
     Active Substance: LISINOPRIL
     Indication: ACUTE KIDNEY INJURY
     Route: 048
     Dates: start: 20091006, end: 20140930
  2. FUROSEMIDE. [Suspect]
     Active Substance: FUROSEMIDE
     Route: 048
     Dates: start: 20080507

REACTIONS (2)
  - Acute kidney injury [None]
  - Azotaemia [None]

NARRATIVE: CASE EVENT DATE: 20140930
